FAERS Safety Report 12187485 (Version 3)
Quarter: 2016Q2

REPORT INFORMATION
  Report Type: Spontaneous
  Country: HR (occurrence: HR)
  Receive Date: 20160317
  Receipt Date: 20160606
  Transmission Date: 20160815
  Serious: Yes (Other)
  Sender: FDA-Public Use
  Company Number: HR-PFIZER INC-2016151941

PATIENT
  Age: 53 Year
  Sex: Female

DRUGS (2)
  1. ATORVASTATIN CALCIUM. [Suspect]
     Active Substance: ATORVASTATIN CALCIUM
     Indication: CORONARY ARTERIAL STENT INSERTION
     Dosage: 20 MG, 1X/DAY
     Route: 048
     Dates: start: 201307, end: 201503
  2. SORTIS [Suspect]
     Active Substance: ATORVASTATIN
     Indication: CORONARY ARTERIAL STENT INSERTION
     Dosage: 20 MG, 1X/DAY
     Route: 048
     Dates: start: 20121011, end: 201307

REACTIONS (3)
  - Amylase increased [Recovered/Resolved]
  - Blood glucose increased [Recovered/Resolved with Sequelae]
  - Abdominal pain [Recovered/Resolved]

NARRATIVE: CASE EVENT DATE: 2013
